FAERS Safety Report 17532655 (Version 3)
Quarter: 2020Q4

REPORT INFORMATION
  Report Type: Spontaneous
  Country: US (occurrence: US)
  Receive Date: 20200312
  Receipt Date: 20201012
  Transmission Date: 20210113
  Serious: No
  Sender: FDA-Public Use
  Company Number: US-KYOWAKIRIN-2020BKK003578

PATIENT

DRUGS (7)
  1. CRYSVITA [Suspect]
     Active Substance: BUROSUMAB-TWZA
     Indication: PHOSPHORUS METABOLISM DISORDER
     Dosage: 120 MG, 1X/2 WEEKS
     Route: 058
     Dates: start: 2020
  2. CRYSVITA [Suspect]
     Active Substance: BUROSUMAB-TWZA
     Indication: PHOSPHORUS METABOLISM DISORDER
  3. DULOXETINE. [Concomitant]
     Active Substance: DULOXETINE
     Indication: PRODUCT USED FOR UNKNOWN INDICATION
     Dosage: 30 MG, DAILY
     Route: 065
  4. MELOXICAM. [Concomitant]
     Active Substance: MELOXICAM
     Indication: PRODUCT USED FOR UNKNOWN INDICATION
     Dosage: 7.5 MG
     Route: 065
  5. CRYSVITA [Suspect]
     Active Substance: BUROSUMAB-TWZA
     Indication: HYPOPHOSPHATAEMIC OSTEOMALACIA
     Dosage: 40 MG, 1X/4 WEEKS
     Route: 058
     Dates: start: 20200212, end: 2020
  6. LOSARTAN. [Concomitant]
     Active Substance: LOSARTAN
     Indication: PRODUCT USED FOR UNKNOWN INDICATION
     Dosage: 25 MG
     Route: 065
  7. CRYSVITA [Suspect]
     Active Substance: BUROSUMAB-TWZA
     Indication: HYPOPHOSPHATAEMIC OSTEOMALACIA
     Dosage: 30 MG, 1X/4 WEEKS
     Route: 058
     Dates: start: 20200212, end: 2020

REACTIONS (4)
  - Overdose [Not Recovered/Not Resolved]
  - Inappropriate schedule of product administration [Not Recovered/Not Resolved]
  - Insomnia [Unknown]
  - Product use in unapproved indication [Not Recovered/Not Resolved]

NARRATIVE: CASE EVENT DATE: 2020
